FAERS Safety Report 4694536-6 (Version None)
Quarter: 2005Q2

REPORT INFORMATION
  Report Type: 
  Country: None (occurrence: None)
  Receive Date: 20050620
  Receipt Date: 20050608
  Transmission Date: 20051028
  Serious: Yes (Hospitalization)
  Sender: FDA-Public Use
  Company Number: US-GLAXOSMITHKLINE-A0561757A

PATIENT
  Age: 29 Year
  Sex: Female
  Weight: 81 kg

DRUGS (1)
  1. VIVARIN TABLETS [Suspect]
     Indication: HYPERVIGILANCE
     Route: 048
     Dates: start: 20050603, end: 20050603

REACTIONS (5)
  - FEAR [None]
  - FEELING JITTERY [None]
  - HEART RATE IRREGULAR [None]
  - INTENTIONAL MISUSE [None]
  - RESPIRATION ABNORMAL [None]
